FAERS Safety Report 7914531-0 (Version None)
Quarter: 2011Q4

REPORT INFORMATION
  Report Type: 
  Country: None (occurrence: None)
  Receive Date: 20111115
  Receipt Date: 20111103
  Transmission Date: 20120403
  Serious: Yes (Other)
  Sender: FDA-Public Use
  Company Number: PHHY2011BR097584

PATIENT
  Age: 63 Year
  Sex: Female

DRUGS (6)
  1. EXFORGE [Suspect]
     Dosage: 1 DF (160/5 MG), DAILY
  2. LOVAZA [Concomitant]
     Indication: MEMORY IMPAIRMENT
     Dosage: UNK
  3. DIGOXIN [Concomitant]
     Dosage: UNK
  4. DIOVAN [Suspect]
     Indication: HYPERTENSION
     Dosage: 1 TABLET DAILY (160MG)
  5. CLONIDINE HYDROCHLORIDE [Concomitant]
  6. ALDACTONE [Concomitant]
     Dosage: UNK

REACTIONS (14)
  - OSTEOARTHRITIS [None]
  - ORAL DISORDER [None]
  - MEMORY IMPAIRMENT [None]
  - EXOSTOSIS [None]
  - BONE PAIN [None]
  - NASOPHARYNGITIS [None]
  - TOOTH DISORDER [None]
  - FATIGUE [None]
  - FALL [None]
  - MUSCLE SPASMS [None]
  - HEMIPLEGIA [None]
  - MYOPIA [None]
  - VISION BLURRED [None]
  - SOMNOLENCE [None]
